FAERS Safety Report 8066521-8 (Version None)
Quarter: 2012Q1

REPORT INFORMATION
  Report Type: 
  Country: None (occurrence: None)
  Receive Date: 20120124
  Receipt Date: 20120113
  Transmission Date: 20120608
  Serious: Yes (Other)
  Sender: FDA-Public Use
  Company Number: PHHY2012DE002971

PATIENT
  Sex: Male

DRUGS (2)
  1. RASILEZ [Suspect]
     Dosage: 1 DF, UNK
     Route: 048
     Dates: start: 20110101
  2. ATACAND [Concomitant]
     Route: 048

REACTIONS (1)
  - CARDIAC DISORDER [None]
